FAERS Safety Report 5447093-0 (Version None)
Quarter: 2007Q3

REPORT INFORMATION
  Report Type: 
  Country: None (occurrence: None)
  Receive Date: 20070809
  Receipt Date: 20070408
  Transmission Date: 20080115
  Serious: No
  Sender: FDA-Public Use
  Company Number: WAES 0704USA01347

PATIENT
  Sex: Female

DRUGS (1)
  1. ZOLINZA [Suspect]
     Dosage: 200 MG/DAILY/PO
     Route: 048

REACTIONS (1)
  - NEUROPATHY [None]
